FAERS Safety Report 4382848-5 (Version None)
Quarter: 2004Q2

REPORT INFORMATION
  Report Type: 
  Country: None (occurrence: None)
  Receive Date: 20040617
  Receipt Date: 20040608
  Transmission Date: 20050107
  Serious: Yes (Death)
  Sender: FDA-Public Use
  Company Number: US-JNJFOC-20040602325

PATIENT
  Age: 33 Year
  Sex: Male

DRUGS (1)
  1. DURAGESIC [Suspect]
     Indication: INTENTIONAL MISUSE
     Dosage: 100 UG/HR, INJECTION
     Dates: start: 20040608, end: 20040608

REACTIONS (1)
  - INTENTIONAL MISUSE [None]
